FAERS Safety Report 15480594 (Version 2)
Quarter: 2018Q4

REPORT INFORMATION
  Report Type: Spontaneous
  Country: US (occurrence: US)
  Receive Date: 20181010
  Receipt Date: 20181028
  Transmission Date: 20190205
  Serious: No
  Sender: FDA-Public Use
  Company Number: US-B.I. PHARMACEUTICALS,INC./RIDGEFIELD-2018-NB-005292

PATIENT

DRUGS (3)
  1. OFEV [Suspect]
     Active Substance: NINTEDANIB
     Indication: FALLOPIAN TUBE CANCER
  2. OFEV [Suspect]
     Active Substance: NINTEDANIB
     Indication: OVARIAN EPITHELIAL CANCER RECURRENT
     Route: 065
  3. OFEV [Suspect]
     Active Substance: NINTEDANIB
     Indication: MALIGNANT PERITONEAL NEOPLASM

REACTIONS (2)
  - Toxicity to various agents [Unknown]
  - Off label use [Unknown]
